FAERS Safety Report 6463157-7 (Version None)
Quarter: 2009Q4

REPORT INFORMATION
  Report Type: 
  Country: None (occurrence: None)
  Receive Date: 20091130
  Receipt Date: 20091116
  Transmission Date: 20100525
  Serious: Yes (Hospitalization)
  Sender: FDA-Public Use
  Company Number: SE-SANOFI-AVENTIS-2009SA003838

PATIENT
  Sex: Male

DRUGS (1)
  1. LEUPRORELIN ACETATE [Suspect]
     Indication: PROSTATE CANCER
     Route: 058

REACTIONS (2)
  - DRUG INEFFECTIVE [None]
  - PATHOLOGICAL FRACTURE [None]
